FAERS Safety Report 6620941-4 (Version None)
Quarter: 2010Q1

REPORT INFORMATION
  Report Type: 
  Country: None (occurrence: None)
  Receive Date: 20100308
  Receipt Date: 20100308
  Transmission Date: 20100710
  Serious: No
  Sender: FDA-Public Use
  Company Number: None

PATIENT
  Age: 60 Year
  Sex: Female

DRUGS (2)
  1. WELLBUTRIN XL [Suspect]
     Dosage: ONCE A DAY ORALLY (DURATION: FIRST USE)
     Route: 048
  2. GENERIC WELLBUTRIN TEAVA [Concomitant]

REACTIONS (3)
  - ANXIETY [None]
  - DRUG HYPERSENSITIVITY [None]
  - PRODUCT SUBSTITUTION ISSUE [None]
